FAERS Safety Report 10766332 (Version 1)
Quarter: 2015Q1

REPORT INFORMATION
  Report Type: Report from Study
  Country: AU (occurrence: AU)
  Receive Date: 20150205
  Receipt Date: 20150205
  Transmission Date: 20150721
  Serious: Yes (Other)
  Sender: FDA-Public Use
  Company Number: AU-BAXTER-2015BAX005538

PATIENT
  Age: 48 Year
  Sex: Female

DRUGS (12)
  1. PROPOFOL. [Suspect]
     Active Substance: PROPOFOL
     Indication: ANAESTHESIA PROCEDURE
     Route: 065
  2. AERRANE ISOFLURANE 1ML_ML INHALATION BOTTLE [Suspect]
     Active Substance: ISOFLURANE
     Indication: ANAESTHESIA PROCEDURE
     Route: 065
  3. BAXTER SEVOFLURANE 250ML INHALATION LIQUID BOTTLE - 106647 [Suspect]
     Active Substance: SEVOFLURANE
     Indication: ANAESTHESIA PROCEDURE
     Route: 055
  4. PARACETAMOL [Suspect]
     Active Substance: ACETAMINOPHEN
     Indication: ANAESTHESIA PROCEDURE
     Route: 065
  5. PARECOXIB [Suspect]
     Active Substance: PARECOXIB
     Indication: ANAESTHESIA PROCEDURE
     Route: 065
  6. PROPOFOL. [Suspect]
     Active Substance: PROPOFOL
     Indication: THYROID CANCER
     Dosage: SIXTEEN MONTHS AFTER ORIGINAL BREAST SURGERY
     Route: 065
  7. FENTANYL. [Suspect]
     Active Substance: FENTANYL
     Indication: ANAESTHESIA PROCEDURE
     Route: 065
  8. MIDAZOLAM [Suspect]
     Active Substance: MIDAZOLAM\MIDAZOLAM HYDROCHLORIDE
     Indication: ANAESTHESIA PROCEDURE
     Route: 065
  9. CEPHALOTHIN [Suspect]
     Active Substance: CEPHALOTHIN
     Indication: ANAESTHESIA PROCEDURE
     Route: 065
  10. BAXTER SEVOFLURANE 250ML INHALATION LIQUID BOTTLE - 106647 [Suspect]
     Active Substance: SEVOFLURANE
     Indication: THYROID CANCER
     Dosage: SIXTEEN MONTHS AFTER ORIGINAL BREAST SURGERY
     Route: 055
  11. MIDAZOLAM [Suspect]
     Active Substance: MIDAZOLAM\MIDAZOLAM HYDROCHLORIDE
     Indication: THYROID CANCER
     Dosage: SIXTEEN MONTHS AFTER ORIGINAL BREAST SURGERY
     Route: 065
  12. CLINDAMYCIN [Suspect]
     Active Substance: CLINDAMYCIN\CLINDAMYCIN PHOSPHATE
     Indication: PRODUCT USED FOR UNKNOWN INDICATION
     Route: 065

REACTIONS (4)
  - Infection [Recovered/Resolved]
  - Pyrexia [Recovered/Resolved]
  - Haemorrhage [Recovered/Resolved]
  - Drug-induced liver injury [Recovered/Resolved]
